FAERS Safety Report 16996733 (Version 1)
Quarter: 2019Q4

REPORT INFORMATION
  Report Type: Spontaneous
  Country: AU (occurrence: AU)
  Receive Date: 20191105
  Receipt Date: 20191105
  Transmission Date: 20200122
  Serious: Yes (Other)
  Sender: FDA-Public Use
  Company Number: NVSC2019AU024646

PATIENT
  Age: 37 Year
  Sex: Male

DRUGS (1)
  1. COSENTYX [Suspect]
     Active Substance: SECUKINUMAB
     Indication: PRODUCT USED FOR UNKNOWN INDICATION
     Dosage: UNK
     Route: 065

REACTIONS (7)
  - Mental disorder [Unknown]
  - General physical condition abnormal [Unknown]
  - Heart rate increased [Unknown]
  - Nightmare [Unknown]
  - Feeling of body temperature change [Unknown]
  - Insomnia [Unknown]
  - Viral infection [Unknown]
